FAERS Safety Report 6098616-2 (Version None)
Quarter: 2009Q1

REPORT INFORMATION
  Report Type: 
  Country: None (occurrence: None)
  Receive Date: 20090302
  Receipt Date: 20090224
  Transmission Date: 20090719
  Serious: Yes (Hospitalization)
  Sender: FDA-Public Use
  Company Number: JP-BRISTOL-MYERS SQUIBB COMPANY-14519813

PATIENT
  Age: 74 Year
  Sex: Female

DRUGS (3)
  1. KENACORT-A INJ 10 MG/ML [Suspect]
     Indication: OSTEOARTHRITIS
     Route: 014
     Dates: start: 20090130, end: 20090130
  2. CARBOCAINE [Suspect]
     Route: 013
     Dates: start: 20090130, end: 20090130
  3. ISODINE [Concomitant]

REACTIONS (1)
  - CRYSTAL ARTHROPATHY [None]
